FAERS Safety Report 16017031 (Version 1)
Quarter: 2019Q1

REPORT INFORMATION
  Report Type: Spontaneous
  Country: DE (occurrence: DE)
  Receive Date: 20190228
  Receipt Date: 20190228
  Transmission Date: 20190418
  Serious: Yes (Hospitalization)
  Sender: FDA-Public Use
  Company Number: DE-ELI_LILLY_AND_COMPANY-DE201902010814

PATIENT
  Age: 77 Year
  Sex: Male

DRUGS (4)
  1. DOCETAXEL OMNICARE [Suspect]
     Active Substance: DOCETAXEL
     Indication: GASTRIC CANCER
     Dosage: 37 MG/M2, MONTHLY (1/M)
     Route: 042
     Dates: start: 20161011, end: 20161212
  2. PACLITAXEL. [Suspect]
     Active Substance: PACLITAXEL
     Indication: PRODUCT USED FOR UNKNOWN INDICATION
     Dosage: UNK UNK, UNKNOWN
     Route: 065
     Dates: start: 20180925
  3. DOCETAXEL OMNICARE [Suspect]
     Active Substance: DOCETAXEL
     Dosage: 65 MG, UNK
     Route: 042
     Dates: start: 20161011, end: 20161212
  4. RAMUCIRUMAB [Suspect]
     Active Substance: RAMUCIRUMAB
     Indication: PRODUCT USED FOR UNKNOWN INDICATION
     Dosage: UNK UNK, UNKNOWN
     Route: 065
     Dates: start: 20180925

REACTIONS (2)
  - Pulmonary embolism [Unknown]
  - Dyspnoea [Unknown]

NARRATIVE: CASE EVENT DATE: 20181024
